FAERS Safety Report 6943436-7 (Version None)
Quarter: 2010Q3

REPORT INFORMATION
  Report Type: 
  Country: None (occurrence: None)
  Receive Date: 20100823
  Receipt Date: 20100812
  Transmission Date: 20110219
  Serious: Yes (Hospitalization)
  Sender: FDA-Public Use
  Company Number: 669157

PATIENT
  Age: 86 Year
  Sex: Female

DRUGS (1)
  1. PACLITAXEL [Suspect]
     Indication: PRODUCT USED FOR UNKNOWN INDICATION
     Dosage: 62 MG CYCLIC, INTRAVENOUS
     Route: 042
     Dates: start: 20100629, end: 20100629

REACTIONS (1)
  - LOSS OF CONSCIOUSNESS [None]
